FAERS Safety Report 9754891 (Version 1)
Quarter: 2013Q4

REPORT INFORMATION
  Report Type: Spontaneous
  Country: US (occurrence: US)
  Receive Date: 20131213
  Receipt Date: 20131213
  Transmission Date: 20140711
  Serious: No
  Sender: FDA-Public Use
  Company Number: US-GLAXOSMITHKLINE-A1007975A

PATIENT
  Age: 57 Year
  Sex: Female

DRUGS (4)
  1. WALGREENS NICOTINE TRANSDERMAL SYSTEM PATCH CLEAR, 21MG [Suspect]
     Indication: EX-TOBACCO USER
     Dates: start: 20130101
  2. WALGREENS LOZENGE CHERRY 4 MG [Suspect]
     Indication: EX-TOBACCO USER
  3. WALGREENS LOZENGE CHERRY 4 MG [Concomitant]
  4. WALGREENS NICOTINE TRANSDERMAL SYSTEM PATCH CLEAR, 21MG [Concomitant]

REACTIONS (6)
  - Abdominal discomfort [Recovered/Resolved]
  - Malaise [Recovered/Resolved]
  - Malaise [Recovered/Resolved]
  - Nausea [Recovered/Resolved]
  - Hiccups [Recovered/Resolved]
  - Drug ineffective [Unknown]
